FAERS Safety Report 4915330-4 (Version None)
Quarter: 2006Q1

REPORT INFORMATION
  Report Type: 
  Country: None (occurrence: None)
  Receive Date: 20060217
  Receipt Date: 20051215
  Transmission Date: 20060701
  Serious: Yes (Disabling)
  Sender: FDA-Public Use
  Company Number: DE-GLAXOSMITHKLINE-D0048248A

PATIENT
  Age: 36 Year
  Sex: Male
  Weight: 65 kg

DRUGS (2)
  1. ESKAZOLE [Suspect]
     Indication: ECHINOCOCCIASIS
     Dosage: 400MG TWICE PER DAY
     Route: 065
     Dates: start: 20020419, end: 20040301
  2. DICLAC [Concomitant]
     Route: 065

REACTIONS (2)
  - HIP DYSPLASIA [None]
  - OSTEOARTHRITIS [None]
